FAERS Safety Report 5844938-7 (Version None)
Quarter: 2008Q3

REPORT INFORMATION
  Report Type: 
  Country: None (occurrence: None)
  Receive Date: 20080812
  Receipt Date: 20080731
  Transmission Date: 20090109
  Serious: Yes (Death)
  Sender: FDA-Public Use
  Company Number: 100#03#2008-03283

PATIENT
  Age: 20 Year
  Sex: Male

DRUGS (7)
  1. TRAMADOL (TRAMADOL) [Suspect]
     Indication: PAIN
  2. DIAZEPAM [Suspect]
     Indication: ANXIETY
  3. DURAGESIC-100 [Suspect]
     Indication: INTENTIONAL DRUG MISUSE
     Dosage: 100 UG ONCE PER HOUR,  TRANSDERMAL
     Route: 062
  4. CHLORPROMAZINE [Concomitant]
  5. ALCOHOL (ETHANOL) [Concomitant]
  6. CANNABIS (CANNABIS SATIVA) [Concomitant]
  7. ECSTASY (METHYLENEDIOXYMETHAMPHETAMINE) [Concomitant]

REACTIONS (8)
  - DRUG LEVEL ABOVE THERAPEUTIC [None]
  - DRUG SCREEN POSITIVE [None]
  - INTENTIONAL DRUG MISUSE [None]
  - PNEUMONIA [None]
  - RESPIRATORY DEPRESSION [None]
  - SKIN LACERATION [None]
  - SUDDEN DEATH [None]
  - WRONG TECHNIQUE IN DRUG USAGE PROCESS [None]
